FAERS Safety Report 13226698 (Version 3)
Quarter: 2017Q2

REPORT INFORMATION
  Report Type: Report from Study
  Country: US (occurrence: US)
  Receive Date: 20170213
  Receipt Date: 20170623
  Transmission Date: 20170830
  Serious: Yes (Hospitalization)
  Sender: FDA-Public Use
  Company Number: US-JNJFOC-20170119545

PATIENT
  Age: 74 Year
  Sex: Female

DRUGS (16)
  1. IMBRUVICA [Suspect]
     Active Substance: IBRUTINIB
     Indication: WALDENSTROM^S MACROGLOBULINAEMIA
     Route: 048
     Dates: start: 20170608
  2. PRILOSEC [Concomitant]
     Active Substance: OMEPRAZOLE MAGNESIUM
  3. AMBIEN [Concomitant]
     Active Substance: ZOLPIDEM TARTRATE
  4. COREG [Concomitant]
     Active Substance: CARVEDILOL
  5. IMDUR [Concomitant]
     Active Substance: ISOSORBIDE MONONITRATE
  6. IMBRUVICA [Suspect]
     Active Substance: IBRUTINIB
     Indication: WALDENSTROM^S MACROGLOBULINAEMIA
     Route: 048
     Dates: start: 20170113, end: 20170115
  7. LATANOPROST. [Concomitant]
     Active Substance: LATANOPROST
  8. ASPIRIN 81 [Concomitant]
     Active Substance: ASPIRIN
  9. COLACE [Concomitant]
     Active Substance: DOCUSATE SODIUM
  10. AUGMENTIN [Concomitant]
     Active Substance: AMOXICILLIN\CLAVULANATE POTASSIUM
  11. MELATONIN [Concomitant]
     Active Substance: MELATONIN
  12. NITROGLYCERIN. [Concomitant]
     Active Substance: NITROGLYCERIN
  13. LORAZEMED [Concomitant]
  14. PRAVASTATIN. [Concomitant]
     Active Substance: PRAVASTATIN
  15. ONDANSETRON [Concomitant]
     Active Substance: ONDANSETRON
  16. ATIVAN [Concomitant]
     Active Substance: LORAZEPAM

REACTIONS (12)
  - Hiatus hernia [Unknown]
  - Headache [Unknown]
  - Abdominal discomfort [Unknown]
  - Gingival bleeding [Unknown]
  - Gastritis [Unknown]
  - Constipation [Unknown]
  - Nausea [Unknown]
  - Dizziness [Unknown]
  - Dyspepsia [Unknown]
  - Melaena [Recovering/Resolving]
  - Pneumonia [Unknown]
  - Night sweats [Unknown]

NARRATIVE: CASE EVENT DATE: 20170113
